FAERS Safety Report 15795101 (Version 5)
Quarter: 2019Q2

REPORT INFORMATION
  Report Type: Spontaneous
  Country: US (occurrence: US)
  Receive Date: 20190107
  Receipt Date: 20190430
  Transmission Date: 20190711
  Serious: Yes (Hospitalization)
  Sender: FDA-Public Use
  Company Number: US-ACTELION-A-US2019-184564

PATIENT
  Age: 86 Year
  Sex: Male
  Weight: 106.58 kg

DRUGS (3)
  1. TRACLEER [Suspect]
     Active Substance: BOSENTAN
     Indication: PULMONARY ARTERIAL HYPERTENSION
     Dosage: 125 MG, BID
     Route: 048
  2. ELIQUIS [Concomitant]
     Active Substance: APIXABAN
  3. DILTIAZEM. [Concomitant]
     Active Substance: DILTIAZEM

REACTIONS (16)
  - Knee arthroplasty [Recovered/Resolved]
  - Pneumonia [Unknown]
  - Syncope [Unknown]
  - Fall [Unknown]
  - Sleep disorder [Unknown]
  - Influenza [Unknown]
  - Cough [Unknown]
  - Dyspnoea [Unknown]
  - Hip fracture [Unknown]
  - Fluid retention [Unknown]
  - Dizziness [Unknown]
  - Hip surgery [Unknown]
  - Tracheostomy [Unknown]
  - Cardiac failure [Unknown]
  - Dyspnoea exertional [Unknown]
  - Fatigue [Unknown]

NARRATIVE: CASE EVENT DATE: 201902
